FAERS Safety Report 4774092-4 (Version None)
Quarter: 2005Q3

REPORT INFORMATION
  Report Type: 
  Country: None (occurrence: None)
  Receive Date: 20050919
  Receipt Date: 20050913
  Transmission Date: 20060218
  Serious: Yes (Other)
  Sender: FDA-Public Use
  Company Number: 200510443BNE

PATIENT
  Sex: Male

DRUGS (14)
  1. CIPROFLOXACIN [Suspect]
     Indication: KLEBSIELLA INFECTION
     Dosage: 500 MG, BID, ORAL
     Route: 048
     Dates: start: 20050619, end: 20050623
  2. AMIODARONE HCL [Suspect]
     Indication: ATRIAL FIBRILLATION
     Dosage: 1.2 G, TOTAL DAILY, INTRAVENOUS
     Route: 042
     Dates: start: 20050616, end: 20050623
  3. RAMIPRIL [Concomitant]
  4. METOPROLOL [Concomitant]
  5. SIMVASTATIN [Concomitant]
  6. ISMN [Concomitant]
  7. CLOPIDOGREL [Concomitant]
  8. ASPIRIN [Concomitant]
  9. ENOXAPARIN SODIUM [Concomitant]
  10. LANSOPRAZOLE [Concomitant]
  11. ALBUTEROL SULFATE HFA [Concomitant]
  12. DROTRECOGIN ALFA (ACTIVATED) [Concomitant]
  13. HUMAN MIXTARD [Concomitant]
  14. HYDROXYZINE [Concomitant]

REACTIONS (3)
  - BLOOD AMYLASE INCREASED [None]
  - CHOLELITHIASIS [None]
  - KLEBSIELLA INFECTION [None]
